FAERS Safety Report 5802557-2 (Version None)
Quarter: 2008Q3

REPORT INFORMATION
  Report Type: 
  Country: None (occurrence: None)
  Receive Date: 20080708
  Receipt Date: 20080626
  Transmission Date: 20090109
  Serious: Yes (Other)
  Sender: FDA-Public Use
  Company Number: PL-WYE-H03439908

PATIENT
  Age: 50 Year
  Sex: Female

DRUGS (1)
  1. EFFEXOR XR [Suspect]
     Indication: MAJOR DEPRESSION
     Route: 048
     Dates: start: 20080301, end: 20080101

REACTIONS (4)
  - ABDOMINAL PAIN UPPER [None]
  - GINGIVAL BLEEDING [None]
  - SKIN LESION [None]
  - STEVENS-JOHNSON SYNDROME [None]
